FAERS Safety Report 6251945-1 (Version None)
Quarter: 2009Q2

REPORT INFORMATION
  Report Type: 
  Country: None (occurrence: None)
  Receive Date: 20090630
  Receipt Date: 20090623
  Transmission Date: 20091009
  Serious: Yes (Disabling)
  Sender: FDA-Public Use
  Company Number: PHHY2009BR25484

PATIENT
  Sex: Female

DRUGS (1)
  1. FORASEQ [Suspect]
     Dosage: 12/ 400 MCG

REACTIONS (4)
  - AMNESIA [None]
  - MALAISE [None]
  - MOVEMENT DISORDER [None]
  - OVERWEIGHT [None]
